FAERS Safety Report 16383911 (Version 1)
Quarter: 2019Q2

REPORT INFORMATION
  Report Type: Spontaneous
  Country: FR (occurrence: FR)
  Receive Date: 20190603
  Receipt Date: 20190603
  Transmission Date: 20190711
  Serious: Yes (Other)
  Sender: FDA-Public Use
  Company Number: FR-SA-2019SA149239

PATIENT
  Age: 86 Year
  Sex: Male
  Weight: 83 kg

DRUGS (3)
  1. RIFADINE [Suspect]
     Active Substance: RIFAMPIN
     Indication: DEVICE RELATED INFECTION
     Route: 048
     Dates: start: 20180718, end: 20180827
  2. SULFAMETHOXAZOLE/TRIMETHOPRIM [Suspect]
     Active Substance: SULFAMETHOXAZOLE\TRIMETHOPRIM
     Indication: DEVICE RELATED INFECTION
     Dosage: 4.5 DF, QD
     Route: 048
     Dates: start: 20180719, end: 20180829
  3. RIFADINE [Suspect]
     Active Substance: RIFAMPIN
     Indication: DEVICE RELATED INFECTION
     Dosage: 2 DF, QD
     Route: 048
     Dates: start: 20180718, end: 20180827

REACTIONS (4)
  - Autoimmune nephritis [Recovered/Resolved]
  - Dermatitis exfoliative generalised [Recovered/Resolved]
  - Cholestasis [Recovered/Resolved]
  - Eosinophilia [Recovered/Resolved]

NARRATIVE: CASE EVENT DATE: 20180823
